FAERS Safety Report 7002728-6 (Version None)
Quarter: 2010Q3

REPORT INFORMATION
  Report Type: 
  Country: None (occurrence: None)
  Receive Date: 20100920
  Receipt Date: 20070716
  Transmission Date: 20110219
  Serious: Yes (Other)
  Sender: FDA-Public Use
  Company Number: US-ASTRAZENECA-2006UW26279

PATIENT
  Age: 15809 Day
  Sex: Male
  Weight: 80.7 kg

DRUGS (8)
  1. SEROQUEL [Suspect]
     Indication: ANXIETY
     Dosage: 25-50 AT NIGHT
     Route: 048
     Dates: start: 20040501
  2. SEROQUEL [Suspect]
     Indication: DEPRESSION
     Dosage: 25-50 AT NIGHT
     Route: 048
     Dates: start: 20040501
  3. SEROQUEL [Suspect]
     Route: 048
     Dates: end: 20040601
  4. SEROQUEL [Suspect]
     Route: 048
     Dates: end: 20040601
  5. CELEBREX [Concomitant]
     Route: 048
     Dates: start: 20040201
  6. RANITIDINE [Concomitant]
     Dates: start: 20030801
  7. CRESTOR [Concomitant]
     Dates: start: 20040301
  8. LORTAB [Concomitant]
     Dates: start: 20031101

REACTIONS (1)
  - PANCREATITIS [None]
